FAERS Safety Report 4962773-9 (Version None)
Quarter: 2006Q2

REPORT INFORMATION
  Report Type: 
  Country: None (occurrence: None)
  Receive Date: 20060404
  Receipt Date: 20060329
  Transmission Date: 20061013
  Serious: Yes (Death)
  Sender: FDA-Public Use
  Company Number: CH-MERCK-0603CHE00314

PATIENT
  Age: 70 Year
  Sex: Female

DRUGS (1)
  1. INVANZ [Suspect]
     Indication: LARGE INTESTINE PERFORATION
     Route: 042
     Dates: start: 20060322

REACTIONS (1)
  - INFECTION [None]
